FAERS Safety Report 5158752-1 (Version None)
Quarter: 2006Q4

REPORT INFORMATION
  Report Type: 
  Country: None (occurrence: None)
  Receive Date: 20061116
  Receipt Date: 20061113
  Transmission Date: 20070319
  Serious: Yes (Hospitalization)
  Sender: FDA-Public Use
  Company Number: 2006BH010448

PATIENT
  Age: 55 Year
  Sex: Female

DRUGS (8)
  1. SODIUM CHLORIDE 0.9% [Suspect]
     Indication: ASTHMA
     Dosage: 250 ML; ONCE
     Dates: start: 20060506
  2. SYNTOPHYLLIN (AMINOPHYLLINE) [Suspect]
     Indication: ASTHMA
     Dosage: 1 VIAL; ONCE
     Dates: start: 20060506, end: 20060506
  3. SOLU-MEDROL [Suspect]
     Indication: ASTHMA
     Dosage: 40 MG; ONCE
     Dates: start: 20060506, end: 20060506
  4. AMBROBENE [Concomitant]
  5. TIOTROPIUM BROMIDE [Concomitant]
  6. FLUTICASONE PROPIONATE [Concomitant]
  7. FLUOXETINE [Concomitant]
  8. RIVOTRIL [Concomitant]

REACTIONS (4)
  - BODY TEMPERATURE INCREASED [None]
  - CHILLS [None]
  - TREMOR [None]
  - WHEEZING [None]
